FAERS Safety Report 15251539 (Version 1)
Quarter: 2018Q3

REPORT INFORMATION
  Report Type: Report from Study
  Country: JP (occurrence: JP)
  Receive Date: 20180807
  Receipt Date: 20180807
  Transmission Date: 20181010
  Serious: Yes (Hospitalization)
  Sender: FDA-Public Use
  Company Number: GXJP2018JP001302

PATIENT
  Age: 75 Year
  Sex: Male
  Weight: 54 kg

DRUGS (37)
  1. ENDOXAN [Concomitant]
     Active Substance: CYCLOPHOSPHAMIDE
     Dosage: 1000 MG/DAY
     Route: 042
     Dates: start: 20160406
  2. PREDONINE [Concomitant]
     Active Substance: PREDNISOLONE
     Dosage: 60 MG, UNK
     Route: 048
     Dates: start: 20160406
  3. NEXIUM [Concomitant]
     Active Substance: ESOMEPRAZOLE MAGNESIUM
     Indication: GASTROOESOPHAGEAL REFLUX DISEASE
     Dosage: 20 MG, DAY
     Route: 048
  4. ONCOVIN [Concomitant]
     Active Substance: VINCRISTINE SULFATE
     Dosage: 1.6 MG, UNK
     Route: 042
     Dates: start: 20160128, end: 20160128
  5. VINORELBINE TARTRATE. [Concomitant]
     Active Substance: VINORELBINE TARTRATE
     Dosage: 50 MG, UNK
     Route: 042
     Dates: start: 20160224, end: 20160224
  6. PREDONINE [Concomitant]
     Active Substance: PREDNISOLONE
     Indication: LYMPHOMA
     Dosage: 60 MG, UNK
     Route: 048
     Dates: start: 20160108, end: 20160112
  7. RITUXAN [Concomitant]
     Active Substance: RITUXIMAB
     Dosage: 600 MG, UNK
     Route: 042
     Dates: start: 20160315, end: 20160315
  8. VESICARE [Concomitant]
     Active Substance: SOLIFENACIN SUCCINATE
     Indication: HYPERTONIC BLADDER
     Dosage: 5 MG, DAY
     Route: 048
  9. SOL?MELCORT [Concomitant]
     Active Substance: METHYLPREDNISOLONE SODIUM SUCCINATE
     Indication: LYMPHOMA
     Dosage: UNK UNK, QD
     Route: 042
     Dates: start: 20160106, end: 20160108
  10. FILGRASTIM BS INJ. SYRINGE [Suspect]
     Active Substance: FILGRASTIM
     Dosage: 75 UG/M2, QD
     Route: 058
     Dates: start: 20160323, end: 20160330
  11. ENDOXAN [Concomitant]
     Active Substance: CYCLOPHOSPHAMIDE
     Dosage: 1000 MG, UNK
     Route: 042
     Dates: start: 20160316, end: 20160316
  12. VINORELBINE TARTRATE. [Concomitant]
     Active Substance: VINORELBINE TARTRATE
     Indication: LYMPHOMA
     Dosage: 50 MG, UNK
     Route: 042
     Dates: start: 20160108, end: 20160108
  13. PREDONINE [Concomitant]
     Active Substance: PREDNISOLONE
     Dosage: 60 MG, UNK
     Route: 048
     Dates: start: 20160224, end: 20160228
  14. RITUXAN [Concomitant]
     Active Substance: RITUXIMAB
     Dosage: 600 MG, UNK
     Route: 042
     Dates: start: 20160405
  15. YOKUKANSAN [Concomitant]
     Active Substance: HERBALS
     Indication: PRODUCT USED FOR UNKNOWN INDICATION
     Dosage: 2.5 G, TID
     Route: 048
     Dates: start: 20160125
  16. BAYASPIRIN [Concomitant]
     Active Substance: ASPIRIN
     Indication: PRODUCT USED FOR UNKNOWN INDICATION
     Dosage: 100 MG, DAY
     Route: 048
  17. FILGRASTIM BS INJ. SYRINGE [Suspect]
     Active Substance: FILGRASTIM
     Dosage: 75 UG/M2, QD
     Route: 058
     Dates: start: 20160304, end: 20160306
  18. ENDOXAN [Concomitant]
     Active Substance: CYCLOPHOSPHAMIDE
     Indication: LYMPHOMA
     Dosage: 1000 MG, UNK
     Route: 042
     Dates: start: 20160108, end: 20160108
  19. PREDONINE [Concomitant]
     Active Substance: PREDNISOLONE
     Dosage: 60 MG, UNK
     Route: 048
     Dates: start: 20160128, end: 20160201
  20. TRAZODONE [Concomitant]
     Active Substance: TRAZODONE HYDROCHLORIDE
     Indication: DELIRIUM
     Dosage: 25 MG, QD
     Route: 048
  21. ENDOXAN [Concomitant]
     Active Substance: CYCLOPHOSPHAMIDE
     Dosage: 1000 MG, UNK
     Route: 042
     Dates: start: 20160128, end: 20160128
  22. ENDOXAN [Concomitant]
     Active Substance: CYCLOPHOSPHAMIDE
     Dosage: 1000 MG, UNK
     Route: 042
     Dates: start: 20160224, end: 20160224
  23. RITUXAN [Concomitant]
     Active Substance: RITUXIMAB
     Dosage: 600 MG, UNK
     Route: 042
     Dates: start: 20160223, end: 20160223
  24. URIEF [Concomitant]
     Active Substance: SILODOSIN
     Indication: BENIGN PROSTATIC HYPERPLASIA
     Dosage: 8 MG, DAY
     Route: 048
     Dates: start: 20160204
  25. FILGRASTIM BS INJ. SYRINGE [Suspect]
     Active Substance: FILGRASTIM
     Dosage: 75 UG/M2, QD
     Route: 058
     Dates: start: 20160203, end: 20160210
  26. VINORELBINE TARTRATE. [Concomitant]
     Active Substance: VINORELBINE TARTRATE
     Dosage: 50 MG/DAY
     Route: 042
     Dates: start: 20160406
  27. PREDONINE [Concomitant]
     Active Substance: PREDNISOLONE
     Dosage: 60 MG, UNK
     Route: 048
     Dates: start: 20160316, end: 20160320
  28. RITUXAN [Concomitant]
     Active Substance: RITUXIMAB
     Indication: LYMPHOMA
     Dosage: 600 MG, UNK
     Route: 042
     Dates: start: 20160127, end: 20160127
  29. ONCOVIN [Concomitant]
     Active Substance: VINCRISTINE SULFATE
     Dosage: 1.6 MG/DAY
     Route: 042
     Dates: start: 20160406
  30. VINORELBINE TARTRATE. [Concomitant]
     Active Substance: VINORELBINE TARTRATE
     Dosage: 50 MG, UNK
     Route: 042
     Dates: start: 20160128, end: 20160128
  31. VINORELBINE TARTRATE. [Concomitant]
     Active Substance: VINORELBINE TARTRATE
     Dosage: 50 MG, UNK
     Route: 042
     Dates: start: 20160316, end: 20160316
  32. FILGRASTIM BS INJ. SYRINGE [Suspect]
     Active Substance: FILGRASTIM
     Indication: NEUTROPENIA
     Dosage: 75 UG/M2, QD
     Route: 058
     Dates: start: 20160118, end: 20160121
  33. FILGRASTIM BS INJ. SYRINGE [Suspect]
     Active Substance: FILGRASTIM
     Dosage: 75 UG/M2, QD
     Route: 058
     Dates: start: 20160411
  34. ONCOVIN [Concomitant]
     Active Substance: VINCRISTINE SULFATE
     Indication: LYMPHOMA
     Dosage: 1.6 MG/DAY
     Route: 042
     Dates: start: 20160108, end: 20160108
  35. ONCOVIN [Concomitant]
     Active Substance: VINCRISTINE SULFATE
     Dosage: 1.6 MG, UNK
     Route: 042
     Dates: start: 20160224, end: 20160224
  36. ONCOVIN [Concomitant]
     Active Substance: VINCRISTINE SULFATE
     Dosage: 1.6 MG, UNK
     Route: 042
     Dates: start: 20160316, end: 20160316
  37. CELECOX [Concomitant]
     Active Substance: CELECOXIB
     Indication: RHEUMATOID ARTHRITIS
     Dosage: 400 MG, DAY
     Route: 048

REACTIONS (8)
  - Pneumonia [Recovered/Resolved]
  - Febrile neutropenia [Recovered/Resolved]
  - Febrile neutropenia [Recovered/Resolved]
  - Sepsis [Recovered/Resolved]
  - Pneumonia [Recovered/Resolved]
  - Cytomegalovirus viraemia [Recovered/Resolved]
  - Febrile neutropenia [Recovered/Resolved]
  - Febrile neutropenia [Recovered/Resolved]

NARRATIVE: CASE EVENT DATE: 201601
